FAERS Safety Report 9026494 (Version 1)
Quarter: 2013Q1

REPORT INFORMATION
  Report Type: Spontaneous
  Country: DK (occurrence: None)
  Receive Date: 20130107
  Receipt Date: 20130107
  Transmission Date: 20140127
  Serious: Yes (Death)
  Sender: FDA-Public Use
  Company Number: 2013MA000039

PATIENT
  Age: 29 Year
  Sex: Male

DRUGS (12)
  1. DIAZEPAM [Suspect]
     Indication: SEDATIVE THERAPY
  2. KADIAN [Suspect]
     Indication: PAIN
     Dates: start: 20090420
  3. PHENAZEPAM [Suspect]
     Indication: PRODUCT USED FOR UNKNOWN INDICATION
  4. DIHYDROCODEINE [Concomitant]
     Indication: PRODUCT USED FOR UNKNOWN INDICATION
  5. GABAPENTIN [Concomitant]
  6. AMITRIPTYLINE [Concomitant]
  7. PROPANOLOL [Concomitant]
  8. CITALOPRAM [Concomitant]
  9. CHLORPHENAMINE [Concomitant]
  10. FERROUS SULPHATE [Concomitant]
  11. PARACETAMOL [Concomitant]
  12. METHADONE [Concomitant]

REACTIONS (4)
  - Toxicity to various agents [None]
  - Drug interaction [None]
  - Overdose [None]
  - Depressed level of consciousness [None]
